FAERS Safety Report 23880716 (Version 1)
Quarter: 2024Q2

REPORT INFORMATION
  Report Type: Spontaneous
  Country: US (occurrence: None)
  Receive Date: 20240521
  Receipt Date: 20240521
  Transmission Date: 20240715
  Serious: Yes (Hospitalization)
  Sender: FDA-Public Use
  Company Number: None

PATIENT
  Sex: Male

DRUGS (1)
  1. LEVALBUTEROL [Suspect]
     Active Substance: LEVALBUTEROL
     Dosage: 2 PUFFS PRN INHALE
     Route: 055
     Dates: start: 20240102, end: 20240213

REACTIONS (4)
  - Anxiety [None]
  - Tremor [None]
  - Drug intolerance [None]
  - Nervousness [None]

NARRATIVE: CASE EVENT DATE: 20240212
